FAERS Safety Report 19176619 (Version 2)
Quarter: 2021Q2

REPORT INFORMATION
  Report Type: Report from Study
  Country: BE (occurrence: BE)
  Receive Date: 20210423
  Receipt Date: 20210520
  Transmission Date: 20210717
  Serious: Yes (Hospitalization, Other)
  Sender: FDA-Public Use
  Company Number: BE-BRISTOL-MYERS SQUIBB COMPANY-BMS-2021-029899

PATIENT
  Age: 73 Year
  Sex: Male

DRUGS (5)
  1. NIVOLUMAB [Suspect]
     Active Substance: NIVOLUMAB
     Indication: MALIGNANT MELANOMA
     Dosage: UNK UNK, Q3WK
     Route: 065
     Dates: start: 20210219
  2. MEDROL [Suspect]
     Active Substance: METHYLPREDNISOLONE
     Dosage: 8 MILLIGRAM, QD
     Route: 065
  3. NIVOLUMAB [Suspect]
     Active Substance: NIVOLUMAB
     Dosage: UNK, Q2WK
     Route: 065
  4. IPILIMUMAB [Suspect]
     Active Substance: IPILIMUMAB
     Indication: MALIGNANT MELANOMA
     Dosage: UNK UNK, Q3WK
     Route: 065
     Dates: start: 20210219
  5. MEDROL [Suspect]
     Active Substance: METHYLPREDNISOLONE
     Indication: SKIN BURNING SENSATION
     Dosage: 32 MG, DAY THIS WEEK, THEN DECREASE THE DAILY DOSE TO 16 MG FOR 7 DAYS, THEN TO 8 MG FOR ANOTHER 7 D
     Route: 042

REACTIONS (4)
  - Skin burning sensation [Unknown]
  - Intraocular pressure increased [Unknown]
  - Skin lesion [Recovering/Resolving]
  - Rash macular [Recovering/Resolving]

NARRATIVE: CASE EVENT DATE: 20210322
